FAERS Safety Report 17768663 (Version 1)
Quarter: 2020Q2

REPORT INFORMATION
  Report Type: Spontaneous
  Country: US (occurrence: US)
  Receive Date: 20200512
  Receipt Date: 20200512
  Transmission Date: 20200714
  Serious: Yes (Other)
  Sender: FDA-Public Use
  Company Number: US-TEVA-2020-US-1233044

PATIENT
  Sex: Female

DRUGS (1)
  1. TRAMADOL. [Suspect]
     Active Substance: TRAMADOL
     Route: 065

REACTIONS (6)
  - Drug dependence [Unknown]
  - Acquired immunodeficiency syndrome [Unknown]
  - Partner stress [Unknown]
  - Malaise [Unknown]
  - Depression [Unknown]
  - Imprisonment [Unknown]
